FAERS Safety Report 6519803-2 (Version None)
Quarter: 2009Q4

REPORT INFORMATION
  Report Type: 
  Country: None (occurrence: None)
  Receive Date: 20091228
  Receipt Date: 20091228
  Transmission Date: 20100525
  Serious: Yes (Hospitalization)
  Sender: FDA-Public Use
  Company Number: None

PATIENT
  Sex: Female
  Weight: 57.4 kg

DRUGS (5)
  1. DAUNORUBICIN HCL [Suspect]
     Dosage: 57 MG
     Dates: end: 20091210
  2. METHOTREXATE [Suspect]
     Dosage: 15 MG
     Dates: end: 20091203
  3. PEG-L ASPARAGINASE (K-H) [Suspect]
     Dosage: 3875 IU
     Dates: end: 20091129
  4. PREDNISONE [Suspect]
     Dosage: 2376
     Dates: end: 20091222
  5. VINCRISTINE SULFATE [Suspect]
     Dosage: 6 MG
     Dates: end: 20091210

REACTIONS (4)
  - CONDITION AGGRAVATED [None]
  - HYPERBILIRUBINAEMIA [None]
  - HYPERTENSION [None]
  - REVERSIBLE POSTERIOR LEUKOENCEPHALOPATHY SYNDROME [None]
